FAERS Safety Report 19242914 (Version 4)
Quarter: 2022Q3

REPORT INFORMATION
  Report Type: Spontaneous
  Country: US (occurrence: US)
  Receive Date: 20210511
  Receipt Date: 20220726
  Transmission Date: 20221027
  Serious: Yes (Other)
  Sender: FDA-Public Use
  Company Number: US-PFIZER INC-2021410789

PATIENT
  Age: 64 Year
  Sex: Female
  Weight: 72.562 kg

DRUGS (6)
  1. PRISTIQ EXTENDED-RELEASE [Suspect]
     Active Substance: DESVENLAFAXINE SUCCINATE
     Indication: Depression
     Dosage: 100 MG, DAILY
     Dates: start: 2012
  2. PREMARIN [Suspect]
     Active Substance: ESTROGENS, CONJUGATED
     Indication: Vulvovaginal dryness
     Dosage: 1/2 APPLICATOR 2X/WEEK
     Dates: start: 2005
  3. GENOTROPIN [Concomitant]
     Active Substance: SOMATROPIN
     Indication: Blood growth hormone decreased
     Dosage: 0.2 MG
  4. GENOTROPIN [Concomitant]
     Active Substance: SOMATROPIN
     Dosage: 0.4 MG, DAILY
     Route: 058
     Dates: start: 202202
  5. GENOTROPIN [Concomitant]
     Active Substance: SOMATROPIN
     Dosage: UNK
     Dates: start: 20220201, end: 20220522
  6. GENOTROPIN [Concomitant]
     Active Substance: SOMATROPIN
     Dosage: 12 MG INJECTION
     Dates: start: 20220523

REACTIONS (7)
  - Craniocerebral injury [Unknown]
  - Accident [Unknown]
  - Concussion [Unknown]
  - Memory impairment [Unknown]
  - Visual impairment [Unknown]
  - Asthenia [Unknown]
  - Cerebral disorder [Unknown]

NARRATIVE: CASE EVENT DATE: 20200801
